FAERS Safety Report 9013809 (Version 1)
Quarter: 2013Q1

REPORT INFORMATION
  Report Type: Spontaneous
  Country: US (occurrence: None)
  Receive Date: 20130108
  Receipt Date: 20130108
  Transmission Date: 20140127
  Serious: Yes (Life-Threatening, Hospitalization)
  Sender: FDA-Public Use
  Company Number: None

PATIENT
  Age: 74 Year
  Sex: Male
  Weight: 108.86 kg

DRUGS (1)
  1. AVASTIN, GENENTECH [Suspect]
     Indication: AGE-RELATED MACULAR DEGENERATION
     Dosage: ONCE IN 4-6 WEEKS.
     Route: 031
     Dates: start: 20080908, end: 20100908

REACTIONS (18)
  - Off label use [None]
  - Feeling abnormal [None]
  - Fatigue [None]
  - Confusional state [None]
  - Ocular hyperaemia [None]
  - Eye pruritus [None]
  - Lacrimation increased [None]
  - Dizziness [None]
  - Hypersomnia [None]
  - Abnormal sensation in eye [None]
  - Cognitive disorder [None]
  - Headache [None]
  - Inflammation [None]
  - Blindness unilateral [None]
  - Neurological symptom [None]
  - Visual acuity reduced [None]
  - Unevaluable event [None]
  - Dacryostenosis acquired [None]
